FAERS Safety Report 4678241-8 (Version None)
Quarter: 2005Q2

REPORT INFORMATION
  Report Type: 
  Country: None (occurrence: None)
  Receive Date: 20050527
  Receipt Date: 20050514
  Transmission Date: 20051028
  Serious: Yes (Hospitalization, Other)
  Sender: FDA-Public Use
  Company Number: 2005049506

PATIENT
  Age: 72 Year
  Sex: Female
  Weight: 42.8649 kg

DRUGS (12)
  1. DETROL LA [Suspect]
     Indication: HYPERTONIC BLADDER
     Dosage: SEE IMAGE
     Route: 048
     Dates: start: 20040101, end: 20040301
  2. DETROL LA [Suspect]
     Indication: HYPERTONIC BLADDER
     Dosage: SEE IMAGE
     Route: 048
     Dates: start: 20040101, end: 20050301
  3. MONTELUKAST (MONTELUKAST0 [Concomitant]
  4. SYNTHROID [Concomitant]
  5. LORAZEPAM [Concomitant]
  6. WELLBUTRIN XL (BUPROPION HYDROCHLORIDE0 [Concomitant]
  7. PROTONIX [Concomitant]
  8. ZELNORM [Concomitant]
  9. MIACALCIN [Concomitant]
  10. BENADRYL [Concomitant]
  11. TYLENOL [Concomitant]
  12. CITRUCEL (METHYLCELLULOSE) [Concomitant]

REACTIONS (4)
  - CONDITION AGGRAVATED [None]
  - DRUG INEFFECTIVE [None]
  - HYPERTONIC BLADDER [None]
  - IRRITABLE BOWEL SYNDROME [None]
